FAERS Safety Report 6006952-0 (Version None)
Quarter: 2008Q4

REPORT INFORMATION
  Report Type: 
  Country: None (occurrence: None)
  Receive Date: 20081217
  Receipt Date: 20080208
  Transmission Date: 20090506
  Serious: No
  Sender: FDA-Public Use
  Company Number: US-ASTRAZENECA-2007UW27373

PATIENT
  Age: 73 Year
  Sex: Male
  Weight: 142.9 kg

DRUGS (15)
  1. CRESTOR [Suspect]
     Indication: BLOOD CHOLESTEROL INCREASED
     Route: 048
     Dates: start: 20071123, end: 20071217
  2. CRESTOR [Suspect]
     Indication: CORONARY ARTERY DISEASE
     Route: 048
     Dates: start: 20071123, end: 20071217
  3. COUMADIN [Concomitant]
     Indication: ATRIAL FIBRILLATION
     Route: 048
     Dates: start: 19910101
  4. DIGITEK [Concomitant]
  5. LEVAQUIN [Concomitant]
  6. TRIAMTERENE W/ HYDROCHLOROTHIAZIDE [Concomitant]
  7. METFORMIN HCL [Concomitant]
     Indication: DIABETES MELLITUS
     Route: 048
     Dates: start: 20061201
  8. ALBUTEROL [Concomitant]
     Route: 055
  9. ADVAIR DISKUS 250/50 [Concomitant]
  10. METOPROLOL TARTRATE [Concomitant]
     Indication: HYPERTENSION
     Route: 048
     Dates: start: 20020101
  11. NITROGLYCERIN [Concomitant]
  12. SENIOR SILVER VITAMIN [Concomitant]
  13. CALCIUM W/MINERALS [Concomitant]
  14. ASPIRIN [Concomitant]
     Indication: ATRIAL FIBRILLATION
     Route: 048
     Dates: start: 20060301
  15. MAXZIDE [Concomitant]
     Indication: HYPERTENSION
     Route: 048
     Dates: start: 20020101

REACTIONS (4)
  - CHROMATURIA [None]
  - DYSPNOEA [None]
  - MUSCLE SPASMS [None]
  - SKIN LESION [None]
